FAERS Safety Report 6202376-1 (Version None)
Quarter: 2009Q2

REPORT INFORMATION
  Report Type: 
  Country: None (occurrence: None)
  Receive Date: 20090521
  Receipt Date: 20090521
  Transmission Date: 20091009
  Serious: No
  Sender: FDA-Public Use
  Company Number: None

PATIENT
  Sex: Female
  Weight: 72.5755 kg

DRUGS (2)
  1. ACTONEL [Suspect]
     Dosage: ONCE-A-MONTH JUST ONCE
     Dates: start: 20090501
  2. FOSAMAX PLUS D [Concomitant]

REACTIONS (10)
  - ABDOMINAL PAIN [None]
  - CHILLS [None]
  - DIARRHOEA [None]
  - DRUG INEFFECTIVE [None]
  - DYSPEPSIA [None]
  - EYE PAIN [None]
  - INFLUENZA LIKE ILLNESS [None]
  - MICTURITION DISORDER [None]
  - MUSCULOSKELETAL DISCOMFORT [None]
  - TREMOR [None]
